FAERS Safety Report 9348564 (Version 1)
Quarter: 2013Q2

REPORT INFORMATION
  Report Type: Spontaneous
  Country: CA (occurrence: CA)
  Receive Date: 20130614
  Receipt Date: 20130614
  Transmission Date: 20140414
  Serious: Yes (Other)
  Sender: FDA-Public Use
  Company Number: CA-VERTEX PHARMACEUTICALS INC-2013-006992

PATIENT
  Age: 65 Year
  Sex: Male

DRUGS (7)
  1. INCIVEK [Suspect]
     Indication: HEPATITIS C
     Dosage: UNK
     Route: 048
     Dates: start: 20130211
  2. PEGINTERFERON [Suspect]
     Indication: HEPATITIS C
     Dosage: UNK
     Dates: start: 20130211
  3. RIBAVIRIN [Suspect]
     Indication: HEPATITIS C
     Dosage: UNK
     Dates: start: 20130211
  4. METOPROLOL [Concomitant]
     Indication: HYPERTENSION
  5. CELEXA [Concomitant]
     Indication: DEPRESSION
  6. LIPITOR [Concomitant]
     Indication: LIPIDS INCREASED
     Dosage: UNK
     Dates: end: 2013
  7. CALCIUM SUPPLEMENTS [Concomitant]

REACTIONS (5)
  - Pleural effusion [Unknown]
  - Anal abscess [Unknown]
  - Subcutaneous abscess [Unknown]
  - Asthenia [Unknown]
  - Haemoglobin decreased [Unknown]
